FAERS Safety Report 4368779-5 (Version None)
Quarter: 2004Q2

REPORT INFORMATION
  Report Type: 
  Country: None (occurrence: None)
  Receive Date: 20040525
  Receipt Date: 20040513
  Transmission Date: 20050107
  Serious: Yes (Life-Threatening, Hospitalization, Disabling)
  Sender: FDA-Public Use
  Company Number: 2004RL000019

PATIENT
  Age: 38 Year
  Sex: Male

DRUGS (1)
  1. RYTHMOL [Suspect]
     Indication: ATRIAL FIBRILLATION
     Dosage: 300 MG; BID; PO
     Route: 048
     Dates: start: 20030630, end: 20040324

REACTIONS (5)
  - CARDIAC ARREST [None]
  - MALAISE [None]
  - NERVOUS SYSTEM DISORDER [None]
  - PALPITATIONS [None]
  - SYNCOPE [None]
